FAERS Safety Report 15639112 (Version 1)
Quarter: 2018Q4

REPORT INFORMATION
  Report Type: Spontaneous
  Country: US (occurrence: US)
  Receive Date: 20181120
  Receipt Date: 20181120
  Transmission Date: 20190205
  Serious: Yes (Hospitalization, Other)
  Sender: FDA-Public Use
  Company Number: US-SUNOVION-2018SUN004491

PATIENT
  Age: 57 Year
  Sex: Female

DRUGS (3)
  1. APTIOM [Suspect]
     Active Substance: ESLICARBAZEPINE ACETATE
     Indication: EPILEPSY
     Dosage: 1200 MG, QD, (600MG, TWO TABLETS IN THE EVENINGS)
     Route: 048
     Dates: end: 201811
  2. LAMOTRIGINE. [Concomitant]
     Active Substance: LAMOTRIGINE
     Dosage: UNK, BID
     Route: 048
  3. VIMPAT [Concomitant]
     Active Substance: LACOSAMIDE
     Dosage: UNK, BID
     Route: 048

REACTIONS (3)
  - Generalised tonic-clonic seizure [Unknown]
  - Headache [Unknown]
  - Hyponatraemia [Recovering/Resolving]
